FAERS Safety Report 21391598 (Version 1)
Quarter: 2022Q3

REPORT INFORMATION
  Report Type: Spontaneous
  Country: DE (occurrence: DE)
  Receive Date: 20220929
  Receipt Date: 20220929
  Transmission Date: 20221027
  Serious: Yes (Hospitalization)
  Sender: FDA-Public Use
  Company Number: DE-DSJP-DSJ-2022-134794AA

PATIENT
  Age: 78 Year
  Sex: Male
  Weight: 65 kg

DRUGS (5)
  1. EDOXABAN [Suspect]
     Active Substance: EDOXABAN
     Indication: Product used for unknown indication
     Dosage: 30 MG (30 MG, 1-0-0-0)
     Route: 048
  2. CARVEDILOL [Suspect]
     Active Substance: CARVEDILOL
     Indication: Product used for unknown indication
     Dosage: 25 MG (25 MG, 1-0-1-0)
     Route: 048
  3. SPIRONOLACTONE [Suspect]
     Active Substance: SPIRONOLACTONE
     Indication: Product used for unknown indication
     Dosage: 50 MG (50 MG, 1-0-0-0)
     Route: 048
  4. PREDNISOLONE [Concomitant]
     Active Substance: PREDNISOLONE
     Dosage: 1 MG (1 MG, 1-0-0-0)
     Route: 048
  5. TORSEMIDE [Concomitant]
     Active Substance: TORSEMIDE
     Dosage: 10 MG (10 MG, 2-0-0-0)
     Route: 048

REACTIONS (9)
  - Oedema peripheral [Recovering/Resolving]
  - Fall [Recovering/Resolving]
  - Dyspnoea [Recovering/Resolving]
  - Oedema peripheral [Recovering/Resolving]
  - Testicular swelling [Recovering/Resolving]
  - Dyspnoea exertional [Recovering/Resolving]
  - Cardiac failure [Recovering/Resolving]
  - Haematoma [Recovering/Resolving]
  - Product prescribing error [Unknown]
